FAERS Safety Report 9096043 (Version 1)
Quarter: 2013Q1

REPORT INFORMATION
  Report Type: Spontaneous
  Country: IT (occurrence: IT)
  Receive Date: 20130207
  Receipt Date: 20130207
  Transmission Date: 20140127
  Serious: Yes (Hospitalization)
  Sender: FDA-Public Use
  Company Number: IT-MYLANLABS-2013S1001986

PATIENT
  Age: 67 Year
  Sex: Female

DRUGS (3)
  1. FLUOXETINE HYDROCHLORIDE [Suspect]
     Indication: MAJOR DEPRESSION
     Route: 048
     Dates: start: 19890101, end: 20130121
  2. CARBOLITHIUM [Concomitant]
     Indication: PRODUCT USED FOR UNKNOWN INDICATION
     Dates: start: 19880101, end: 20130121
  3. EUTIROX [Concomitant]
     Indication: PRODUCT USED FOR UNKNOWN INDICATION

REACTIONS (1)
  - Interstitial lung disease [Unknown]
